FAERS Safety Report 9127003 (Version 2)
Quarter: 2013Q2

REPORT INFORMATION
  Report Type: Spontaneous
  Country: IE (occurrence: IE)
  Receive Date: 20130122
  Receipt Date: 20130430
  Transmission Date: 20140414
  Serious: Yes (Hospitalization)
  Sender: FDA-Public Use
  Company Number: IE-GLAXOSMITHKLINE-B0861083A

PATIENT
  Age: 35 Year
  Sex: Female

DRUGS (8)
  1. ZOFRAN [Suspect]
     Indication: PROCEDURAL NAUSEA
     Dosage: 4MG SINGLE DOSE
     Route: 042
     Dates: start: 20130111, end: 20130111
  2. REMIFENTANIL [Concomitant]
     Indication: INTRAOPERATIVE CARE
     Dates: start: 20130111
  3. PARACETAMOL [Concomitant]
     Indication: INTRAOPERATIVE CARE
     Dates: start: 20130111
  4. DEXAMETHASONE [Concomitant]
     Indication: INTRAOPERATIVE CARE
     Dates: start: 20130111
  5. DICLOFENAC [Concomitant]
     Indication: INTRAOPERATIVE CARE
     Dates: start: 20130111
  6. CEFUROXIME [Concomitant]
     Indication: INTRAOPERATIVE CARE
     Dates: start: 20130111
  7. SEVOFLURANE [Concomitant]
     Indication: INTRAOPERATIVE CARE
     Dates: start: 20130111
  8. FENTANYL [Concomitant]
     Indication: INTRAOPERATIVE CARE
     Dates: start: 20130111

REACTIONS (5)
  - Oculogyric crisis [Recovered/Resolved]
  - Extrapyramidal disorder [Recovered/Resolved]
  - Tremor [Recovered/Resolved]
  - Eye movement disorder [Recovered/Resolved]
  - Dystonia [Recovered/Resolved]
